FAERS Safety Report 11311022 (Version 6)
Quarter: 2016Q2

REPORT INFORMATION
  Report Type: Report from Study
  Country: DE (occurrence: DE)
  Receive Date: 20150727
  Receipt Date: 20160510
  Transmission Date: 20160815
  Serious: Yes (Hospitalization)
  Sender: FDA-Public Use
  Company Number: DE-ROCHE-1587448

PATIENT
  Age: 76 Year
  Sex: Female

DRUGS (7)
  1. L-THYROX [Concomitant]
     Active Substance: LEVOTHYROXINE SODIUM
  2. ROACTEMRA [Suspect]
     Active Substance: TOCILIZUMAB
     Indication: RHEUMATOID ARTHRITIS
     Route: 058
     Dates: start: 20150428
  3. ROACTEMRA [Suspect]
     Active Substance: TOCILIZUMAB
     Indication: MIXED CONNECTIVE TISSUE DISEASE
  4. PREDNISOLON [Concomitant]
     Active Substance: PREDNISOLONE
     Indication: RHEUMATOID ARTHRITIS
     Route: 065
  5. PREDNISOLON [Concomitant]
     Active Substance: PREDNISOLONE
     Route: 065
  6. FALITHROM [Concomitant]
     Active Substance: PHENPROCOUMON
     Route: 048
  7. PREDNISOLON [Concomitant]
     Active Substance: PREDNISOLONE
     Route: 065

REACTIONS (7)
  - Dysphonia [Not Recovered/Not Resolved]
  - Nasopharyngitis [Not Recovered/Not Resolved]
  - Oropharyngeal pain [Not Recovered/Not Resolved]
  - Pulmonary fibrosis [Recovered/Resolved]
  - Visual acuity reduced [Not Recovered/Not Resolved]
  - Myalgia [Recovered/Resolved]
  - Cough [Not Recovered/Not Resolved]

NARRATIVE: CASE EVENT DATE: 20150526
